FAERS Safety Report 6856203-X (Version None)
Quarter: 2010Q3

REPORT INFORMATION
  Report Type: 
  Country: None (occurrence: None)
  Receive Date: 20100719
  Receipt Date: 20100709
  Transmission Date: 20110219
  Serious: Yes (Hospitalization, Other)
  Sender: FDA-Public Use
  Company Number: US-ASTRAZENECA-2010SE30256

PATIENT
  Age: 54 Year
  Sex: Male
  Weight: 75.7 kg

DRUGS (5)
  1. SEROQUEL [Suspect]
     Indication: INSOMNIA
     Route: 048
     Dates: start: 20090101, end: 20100701
  2. SEROQUEL [Suspect]
     Route: 048
     Dates: start: 20090101, end: 20100701
  3. XANAX [Concomitant]
     Indication: INSOMNIA
  4. OXYCONTIN [Concomitant]
     Indication: BACK PAIN
  5. MORPHINE [Concomitant]
     Indication: BACK PAIN

REACTIONS (10)
  - AMMONIA ABNORMAL [None]
  - AORTIC ANEURYSM [None]
  - CONFUSIONAL STATE [None]
  - DRUG DOSE OMISSION [None]
  - INSOMNIA [None]
  - PLATELET COUNT DECREASED [None]
  - RED BLOOD CELL COUNT DECREASED [None]
  - RENAL CYST [None]
  - VOMITING [None]
  - WHITE BLOOD CELL COUNT DECREASED [None]
